FAERS Safety Report 8568530-9 (Version None)
Quarter: 2012Q3

REPORT INFORMATION
  Report Type: 
  Country: None (occurrence: None)
  Receive Date: 20120803
  Receipt Date: 20120201
  Transmission Date: 20120928
  Serious: No
  Sender: FDA-Public Use
  Company Number: US-ABBOTT-12P-163-0900618-00

PATIENT
  Sex: Male
  Weight: 68.1 kg

DRUGS (4)
  1. NIASPAN [Suspect]
     Indication: ARTERIOSCLEROSIS
     Dosage: EVERY NIGHT
     Dates: start: 20120118
  2. NIASPAN [Suspect]
     Indication: HIGH DENSITY LIPOPROTEIN DECREASED
  3. BENICAR [Concomitant]
     Indication: PRODUCT USED FOR UNKNOWN INDICATION
     Dosage: DAILY
  4. HYDROCHLOROTHIAZIDE [Concomitant]
     Indication: PRODUCT USED FOR UNKNOWN INDICATION
     Dosage: DAILY

REACTIONS (7)
  - FLUSHING [None]
  - SALIVARY HYPERSECRETION [None]
  - FEELING HOT [None]
  - PARAESTHESIA [None]
  - INSOMNIA [None]
  - NAUSEA [None]
  - ABDOMINAL DISCOMFORT [None]
